FAERS Safety Report 11312269 (Version 4)
Quarter: 2020Q2

REPORT INFORMATION
  Report Type: Spontaneous
  Country: US (occurrence: US)
  Receive Date: 20150727
  Receipt Date: 20200527
  Transmission Date: 20200713
  Serious: Yes (Death, Life-Threatening, Hospitalization, Disabling, Other)
  Sender: FDA-Public Use
  Company Number: US-009507513-1507USA010647

PATIENT
  Sex: Female

DRUGS (5)
  1. JANUVIA [Suspect]
     Active Substance: SITAGLIPTIN PHOSPHATE
     Indication: TYPE 2 DIABETES MELLITUS
     Dosage: TOTAL DAILY DOSE AS 100 MG
     Route: 048
     Dates: start: 2013, end: 20150605
  2. ZETIA [Concomitant]
     Active Substance: EZETIMIBE
     Indication: PRODUCT USED FOR UNKNOWN INDICATION
     Dosage: UNK
     Route: 048
  3. JANUMET [Suspect]
     Active Substance: METFORMIN HYDROCHLORIDE\SITAGLIPTIN PHOSPHATE
     Indication: TYPE 2 DIABETES MELLITUS
     Dosage: 1 TAB, TWICE DAILY
     Route: 048
     Dates: start: 20140909, end: 2015
  4. BYSTOLIC [Concomitant]
     Active Substance: NEBIVOLOL HYDROCHLORIDE
     Indication: ARRHYTHMIA
     Dosage: UNK
     Route: 065
  5. ENPROSTIL [Concomitant]
     Active Substance: ENPROSTIL
     Indication: PRODUCT USED FOR UNKNOWN INDICATION
     Route: 065

REACTIONS (11)
  - Hypomagnesaemia [Unknown]
  - Failure to thrive [Unknown]
  - Pneumonia [Unknown]
  - Pulmonary embolism [Unknown]
  - Hypotension [Unknown]
  - Deep vein thrombosis [Unknown]
  - Bile duct obstruction [Unknown]
  - Pancreatitis [Unknown]
  - Pancreatic carcinoma metastatic [Fatal]
  - Hypokalaemia [Unknown]
  - Gastrointestinal wall thickening [Unknown]

NARRATIVE: CASE EVENT DATE: 2015
